FAERS Safety Report 6989540-9 (Version None)
Quarter: 2010Q3

REPORT INFORMATION
  Report Type: 
  Country: None (occurrence: None)
  Receive Date: 20100916
  Receipt Date: 20100106
  Transmission Date: 20110219
  Serious: Yes (Other)
  Sender: FDA-Public Use
  Company Number: US-PFIZER INC-2009304909

PATIENT
  Sex: Female
  Weight: 95.238 kg

DRUGS (21)
  1. LYRICA [Suspect]
     Indication: NERVE COMPRESSION
     Dosage: 300 MG, UNK
     Dates: start: 20070401
  2. LYRICA [Suspect]
     Dosage: 100 MG, UNK
     Dates: start: 20070401
  3. IBUPROFEN [Suspect]
     Dosage: 800 MG, 2X/DAY
  4. ULTRAM [Concomitant]
     Indication: NEURALGIA
     Dosage: 300 MG, 1X/DAY
     Route: 048
  5. LIPITOR [Concomitant]
     Indication: BLOOD CHOLESTEROL INCREASED
     Dosage: 20 MG, 1X/DAY
     Route: 048
     Dates: start: 19990101
  6. ALDACTONE [Concomitant]
     Indication: BLOOD TESTOSTERONE INCREASED
     Dosage: 100 MG, 2X/DAY
     Route: 048
  7. METFORMIN [Concomitant]
     Indication: TYPE 1 DIABETES MELLITUS
     Dosage: 1000 MG, 2X/DAY
     Route: 048
  8. ACETYLSALICYLIC ACID [Concomitant]
     Dosage: 81 MG, 1X/DAY
     Route: 048
  9. VITAMIN D [Concomitant]
     Dosage: 50000 IU, WEEKLY
  10. VITAMIN D [Concomitant]
     Dosage: FREQUENCY: CYCLIC,
  11. CLARITIN [Concomitant]
     Indication: HYPERSENSITIVITY
     Dosage: UNK
  12. ULTRAM ER [Concomitant]
  13. PERCOCET [Concomitant]
     Indication: PAIN
     Dosage: FREQUENCY: AS NEEDED,
  14. VICODIN [Concomitant]
     Indication: PAIN
     Dosage: FREQUENCY: AS NEEDED,
  15. PAMELOR [Concomitant]
     Dosage: 30 MG, 1X/DAY
  16. FLEXERIL [Concomitant]
  17. LUNESTA [Concomitant]
     Dosage: UNK
  18. MELATONIN [Concomitant]
     Dosage: UNK
  19. INSULIN [Concomitant]
     Dosage: UNK
  20. CYANOCOBALAMIN, FOLIC ACID, PYRIDOXINE [Concomitant]
     Dosage: UNK
  21. MULTI-VITAMINS [Concomitant]
     Dosage: UNK

REACTIONS (15)
  - ACCIDENT AT WORK [None]
  - ANGER [None]
  - ARTHRALGIA [None]
  - BLOOD CREATININE INCREASED [None]
  - CERVICOBRACHIAL SYNDROME [None]
  - DEPRESSION [None]
  - FEELING ABNORMAL [None]
  - INSOMNIA [None]
  - LIMB OPERATION [None]
  - LUMBAR RADICULOPATHY [None]
  - MENSTRUAL DISORDER [None]
  - PAIN [None]
  - PSYCHOMOTOR HYPERACTIVITY [None]
  - SENSORY DISTURBANCE [None]
  - SKIN ULCER [None]
